FAERS Safety Report 23116288 (Version 3)
Quarter: 2024Q3

REPORT INFORMATION
  Report Type: Report from Study
  Country: LT (occurrence: LT)
  Receive Date: 20231027
  Receipt Date: 20240816
  Transmission Date: 20241016
  Serious: Yes (Hospitalization, Other)
  Sender: VERITY PHARMACEUTICALS
  Company Number: LT-VER-202300001

PATIENT
  Age: 77 Year
  Sex: Male
  Weight: 79 kg

DRUGS (2)
  1. TRIPTORELIN [Suspect]
     Active Substance: TRIPTORELIN
     Indication: Prostate cancer
     Dosage: 22.5 MILLIGRAM(S), IN 6 MONTH, POWDER AND SOLVENT FOR SUSPENSION FOR INJECTION
     Route: 058
     Dates: start: 20230510, end: 20230510
  2. TRIPTORELIN [Suspect]
     Active Substance: TRIPTORELIN
     Indication: Prostate cancer
     Dosage: 22.5 MILLIGRAM(S), POWDER AND SOLVENT FOR SUSPENSION FOR INJECTION.??RIGHT ABDOMINAL REGION.
     Route: 058
     Dates: start: 20231023, end: 20231023

REACTIONS (1)
  - Pneumothorax spontaneous [Recovered/Resolved]

NARRATIVE: CASE EVENT DATE: 20230803
